FAERS Safety Report 4998496-X (Version None)
Quarter: 2006Q2

REPORT INFORMATION
  Report Type: 
  Country: None (occurrence: None)
  Receive Date: 20060508
  Receipt Date: 20060426
  Transmission Date: 20061013
  Serious: Yes (Hospitalization)
  Sender: FDA-Public Use
  Company Number: US017397

PATIENT
  Age: 75 Year
  Sex: Female

DRUGS (4)
  1. TRISENOX [Suspect]
     Indication: ACUTE PROMYELOCYTIC LEUKAEMIA
     Dosage: 7.65 MG QD INTRAVENOUS DRIP
     Route: 041
     Dates: start: 20051110, end: 20060108
  2. GABEXATE MESILATE [Concomitant]
  3. CEFEPIME DIHYDROCHLORIDE [Concomitant]
  4. MICAFUNGIN SODIUM [Concomitant]

REACTIONS (1)
  - WHITE BLOOD CELL COUNT DECREASED [None]
